FAERS Safety Report 8162426-2 (Version None)
Quarter: 2012Q1

REPORT INFORMATION
  Report Type: 
  Country: None (occurrence: None)
  Receive Date: 20120221
  Receipt Date: 20120131
  Transmission Date: 20120608
  Serious: Yes (Death, Hospitalization, Disabling)
  Sender: FDA-Public Use
  Company Number: WAES 1201USA03256

PATIENT
  Age: 13 Year
  Sex: Male
  Weight: 51.7101 kg

DRUGS (19)
  1. MAGNESIUM OXIDE [Concomitant]
  2. FLAGYL [Concomitant]
  3. SEPTRA [Concomitant]
  4. CEFEPIME [Concomitant]
  5. LASIX [Concomitant]
  6. ACETAMINOPHEN [Concomitant]
  7. OXYCODONE HCL [Concomitant]
  8. IOBENGUANE SULFATE I 131 [Suspect]
     Indication: NEUROBLASTOMA
     Dosage: /1X/IV
     Route: 042
     Dates: start: 20111208, end: 20111208
  9. GRANULOCYTE COLONY STIMULATING [Concomitant]
  10. VITAMIN D (UNSPECIFIED) [Concomitant]
  11. BENADRYL [Concomitant]
  12. MIRALAX [Concomitant]
  13. ACYCLOVIR [Concomitant]
  14. CALCIUM CARBONATE [Concomitant]
  15. DILAUDID [Concomitant]
  16. ZOFRAN [Concomitant]
  17. CAP VORINOSTAT UNK [Suspect]
     Indication: NEUROBLASTOMA
     Dosage: 350 MG/DAILY/PO
     Route: 048
     Dates: start: 20111206, end: 20111219
  18. MORPHINE [Concomitant]
  19. PANTOPRAZOLE [Concomitant]

REACTIONS (23)
  - DEHYDRATION [None]
  - THROMBOCYTOPENIA [None]
  - INTERVERTEBRAL DISC PROTRUSION [None]
  - GASTROINTESTINAL HAEMORRHAGE [None]
  - PUPIL FIXED [None]
  - ALANINE AMINOTRANSFERASE INCREASED [None]
  - BACK PAIN [None]
  - NAUSEA [None]
  - DISEASE PROGRESSION [None]
  - PYREXIA [None]
  - BRADYCARDIA [None]
  - METASTASES TO PLEURA [None]
  - PROCEDURAL HAEMORRHAGE [None]
  - ACTIVATED PARTIAL THROMBOPLASTIN TIME PROLONGED [None]
  - HEPATIC FUNCTION ABNORMAL [None]
  - HYPERTENSION [None]
  - VOMITING [None]
  - PROTHROMBIN TIME PROLONGED [None]
  - ASPARTATE AMINOTRANSFERASE INCREASED [None]
  - EAR HAEMORRHAGE [None]
  - SUBDURAL HAEMATOMA [None]
  - INTERNATIONAL NORMALISED RATIO INCREASED [None]
  - PETECHIAE [None]
